FAERS Safety Report 11787447 (Version 1)
Quarter: 2015Q4

REPORT INFORMATION
  Report Type: Spontaneous
  Country: BR (occurrence: BR)
  Receive Date: 20151130
  Receipt Date: 20151130
  Transmission Date: 20160305
  Serious: Yes (Death, Other)
  Sender: FDA-Public Use
  Company Number: BR-PFIZER INC-2015403002

PATIENT
  Sex: Male

DRUGS (2)
  1. LYRICA [Suspect]
     Active Substance: PREGABALIN
     Dosage: UNK MG, UNK
  2. TRAMAL [Suspect]
     Active Substance: TRAMADOL

REACTIONS (2)
  - Neoplasm malignant [Unknown]
  - Death [Fatal]
